FAERS Safety Report 20715557 (Version 1)
Quarter: 2022Q2

REPORT INFORMATION
  Report Type: Spontaneous
  Country: US (occurrence: US)
  Receive Date: 20220415
  Receipt Date: 20220415
  Transmission Date: 20220721
  Serious: Yes (Other)
  Sender: FDA-Public Use
  Company Number: US-TEVA-2022-US-2026910

PATIENT
  Age: 63 Year
  Sex: Female

DRUGS (14)
  1. EZETIMIBE [Suspect]
     Active Substance: EZETIMIBE
     Indication: Product used for unknown indication
     Route: 065
  2. EPCLUSA [Suspect]
     Active Substance: SOFOSBUVIR\VELPATASVIR
     Indication: Chronic hepatitis C
     Dosage: 1 DOSAGE FORMS DAILY;
     Route: 048
     Dates: start: 20220303
  3. LIPITOR [Suspect]
     Active Substance: ATORVASTATIN CALCIUM
     Indication: Product used for unknown indication
     Route: 065
  4. CLONIDINE HYDROCHLORIDE [Concomitant]
     Active Substance: CLONIDINE HYDROCHLORIDE
  5. ATENOLOL [Concomitant]
     Active Substance: ATENOLOL
  6. CETIRIZINE [Concomitant]
     Active Substance: CETIRIZINE HYDROCHLORIDE
  7. VITAMIN D [Concomitant]
     Active Substance: VITAMIN D NOS
  8. NORCO [Concomitant]
     Active Substance: ACETAMINOPHEN\HYDROCODONE BITARTRATE
  9. MELOXICAM [Concomitant]
     Active Substance: MELOXICAM
  10. NIFEDIPINE [Concomitant]
     Active Substance: NIFEDIPINE
  11. HYDRALAZINE [Concomitant]
     Active Substance: HYDRALAZINE HYDROCHLORIDE
  12. DOCUSATE SODIUM [Concomitant]
     Active Substance: DOCUSATE SODIUM
  13. HYDRALAZINE HYDROCHLORIDE [Concomitant]
     Active Substance: HYDRALAZINE HYDROCHLORIDE
  14. DULCOLAX NOS [Concomitant]
     Active Substance: BISACODYL OR DOCUSATE SODIUM

REACTIONS (6)
  - Angioedema [Unknown]
  - Swelling face [Unknown]
  - Dysphonia [Not Recovered/Not Resolved]
  - Intentional dose omission [Unknown]
  - Swollen tongue [Unknown]
  - Hypersensitivity [Unknown]

NARRATIVE: CASE EVENT DATE: 20220305
